FAERS Safety Report 7392656-9 (Version None)
Quarter: 2011Q2

REPORT INFORMATION
  Report Type: 
  Country: None (occurrence: None)
  Receive Date: 20110404
  Receipt Date: 20110324
  Transmission Date: 20111010
  Serious: Yes (Death, Hospitalization)
  Sender: FDA-Public Use
  Company Number: FR-BAXTER-2011BH008273

PATIENT
  Age: 75 Year
  Sex: Male

DRUGS (7)
  1. ETOPOSIDE [Suspect]
     Indication: B-CELL LYMPHOMA STAGE IV
     Route: 042
     Dates: start: 20101129, end: 20110110
  2. VINCRISTINE SULFATE [Suspect]
     Indication: B-CELL LYMPHOMA STAGE IV
     Route: 042
     Dates: start: 20101018, end: 20101108
  3. CARDIOXANE [Suspect]
     Indication: PROPHYLAXIS
     Route: 042
     Dates: start: 20101018, end: 20110110
  4. DOXORUBICIN GENERIC [Suspect]
     Indication: B-CELL LYMPHOMA STAGE IV
     Route: 042
     Dates: start: 20101018, end: 20110110
  5. PREDNISONE [Suspect]
     Indication: B-CELL LYMPHOMA STAGE IV
     Route: 048
     Dates: start: 20101018, end: 20110110
  6. CYCLOPHOSPHAMIDE [Suspect]
     Indication: B-CELL LYMPHOMA STAGE IV
     Route: 042
     Dates: start: 20101018, end: 20110110
  7. MABTHERA [Suspect]
     Indication: B-CELL LYMPHOMA STAGE IV
     Route: 042
     Dates: start: 20101018, end: 20110110

REACTIONS (1)
  - PROGRESSIVE MULTIFOCAL LEUKOENCEPHALOPATHY [None]
